FAERS Safety Report 20453791 (Version 1)
Quarter: 2022Q1

REPORT INFORMATION
  Report Type: Report from Study
  Country: US (occurrence: None)
  Receive Date: 20220210
  Receipt Date: 20220210
  Transmission Date: 20220424
  Serious: No
  Sender: FDA-Public Use
  Company Number: US-Orion Corporation ORION PHARMA-ENT 2021-0133

PATIENT
  Sex: Male
  Weight: 70.7 kg

DRUGS (7)
  1. ENTACAPONE [Suspect]
     Active Substance: ENTACAPONE
     Indication: Product used for unknown indication
     Dosage: ENTACAPONE: 200 MG
     Route: 065
  2. GOCOVRI [Suspect]
     Active Substance: AMANTADINE
     Indication: Dyskinesia
     Dosage: STRENGTH: 137 MG, AT BEDTIME
     Route: 048
     Dates: start: 20210521, end: 20210527
  3. GOCOVRI [Suspect]
     Active Substance: AMANTADINE
     Dosage: STRENGTH: 137 MG, AT BEDTIME, 2 CAPSULES
     Route: 048
     Dates: start: 20210528
  4. CARBIDOPA\LEVODOPA [Suspect]
     Active Substance: CARBIDOPA\LEVODOPA
     Indication: Product used for unknown indication
     Dosage: STRENGTH: 25/100 MG
     Route: 065
  5. CARBIDOPA\LEVODOPA [Suspect]
     Active Substance: CARBIDOPA\LEVODOPA
     Dosage: STRENGTH: 50-200 MG
     Route: 065
  6. CARBIDOPA\LEVODOPA [Suspect]
     Active Substance: CARBIDOPA\LEVODOPA
     Dosage: AT NIGHT TIME
     Route: 065
  7. IBUPROFEN [Suspect]
     Active Substance: IBUPROFEN
     Indication: Product used for unknown indication
     Dosage: STRENGTH: 200 MG
     Route: 065

REACTIONS (6)
  - Gastritis [Recovering/Resolving]
  - Multiple drug therapy [Recovering/Resolving]
  - Muscular weakness [Recovering/Resolving]
  - Tachyphrenia [Recovering/Resolving]
  - Nausea [Recovering/Resolving]
  - Initial insomnia [Recovering/Resolving]

NARRATIVE: CASE EVENT DATE: 20210101
